FAERS Safety Report 8539683-3 (Version None)
Quarter: 2012Q3

REPORT INFORMATION
  Report Type: 
  Country: None (occurrence: None)
  Receive Date: 20120726
  Receipt Date: 20111228
  Transmission Date: 20120928
  Serious: No
  Sender: FDA-Public Use
  Company Number: US-ASTRAZENECA-2009SE30282

PATIENT
  Age: 43 Year
  Sex: Female
  Weight: 103 kg

DRUGS (31)
  1. FLEXERIL [Concomitant]
     Dates: start: 20070412
  2. NICOTINE [Concomitant]
     Dosage: 7 MG PER 24 HOURS
     Dates: start: 20021125
  3. ZANAFLEX [Concomitant]
     Indication: HEADACHE
     Dates: start: 20061101
  4. SEROQUEL [Suspect]
     Indication: SLEEP DISORDER
     Route: 048
     Dates: start: 19960101, end: 20060101
  5. SEROQUEL [Suspect]
     Indication: DEPRESSION
     Route: 048
     Dates: start: 19960101, end: 20060101
  6. PREVACID [Concomitant]
     Dates: start: 20061101
  7. ALPRAZOLAM [Concomitant]
     Dates: start: 20021024
  8. ZANAFLEX [Concomitant]
     Indication: PAIN
     Dates: start: 20061101
  9. AMITRIPTYLINE HCL [Concomitant]
     Dosage: 25 MG 1-2 TABLETS AT BEDTIME
     Dates: start: 20070412
  10. ACTONEL [Concomitant]
     Dates: start: 20061101
  11. HYDROCODONE BITARTRATE AND ACETAMINOPHEN [Concomitant]
     Dosage: 7.5 - 50
     Dates: start: 20021024
  12. METOCLOPRAMIDE HYDROCHLORIDE [Concomitant]
     Dosage: 10 MG TAKE ONE TABLET 30 MINUTES BEFORE MEALS AND AT BEDTIME
     Route: 048
     Dates: start: 20070412
  13. TIZANIDINE HCL [Concomitant]
     Dosage: 4 MG TAKE ONE HALF TO ONE TABLET ONE TO THREE TIMES A DAY
     Dates: start: 20061101
  14. LAMISIL [Concomitant]
     Dates: start: 20041203
  15. SEROQUEL [Suspect]
     Route: 048
     Dates: start: 19990101, end: 20080101
  16. HYDROCODONE BITARTRATE + ACETAMINOPHEN [Concomitant]
     Dosage: 7.5 - 500 MG TAKE ONE TABLET 3 TO 4 TIMES DAILY
     Route: 048
     Dates: start: 20070412
  17. TRIAMTERENE AND HYDROCHLOROTHIAZIDE [Concomitant]
     Dosage: 37.5-25 MG TAKE ONE CAPSULE DAILY
     Dates: start: 20070831
  18. PROMETHAZINE [Concomitant]
     Dates: start: 20021123
  19. CHOLINE MAG TRISAL [Concomitant]
     Dosage: 750
     Dates: start: 20021125
  20. FENTANYL [Concomitant]
     Dosage: 50 MCG PER HOUR
     Dates: start: 20090212
  21. BONIVA [Concomitant]
     Dosage: 150 MG TAKE ONE TABLET ONCE MONTHLY
     Dates: start: 20070412
  22. LAMICTAL [Concomitant]
     Dates: start: 20070412
  23. SEROQUEL [Suspect]
     Route: 048
     Dates: start: 19990101, end: 20080101
  24. SEROQUEL [Suspect]
     Route: 048
     Dates: start: 19990101, end: 20080101
  25. PROPRANOLOL HYDROCHLORIDE [Concomitant]
     Indication: MIGRAINE
     Route: 048
     Dates: start: 20070412
  26. FLEXERIL [Concomitant]
     Dates: end: 20061101
  27. ASPIRIN [Concomitant]
     Dates: start: 20070412
  28. GABAPENTIN [Concomitant]
     Indication: PAIN
     Dosage: 300 MG ONCE A DAY FOR THREE DAYS, TWICE A DAY FOR THREE DAYS THEN THREE TIMES A DAY
     Dates: end: 20070831
  29. SEROQUEL [Suspect]
     Indication: BIPOLAR DISORDER
     Route: 048
     Dates: start: 19960101, end: 20060101
  30. AMITRIPTYLINE HCL [Concomitant]
     Dates: end: 20070831
  31. URSODIOL [Concomitant]
     Dates: start: 20051224

REACTIONS (9)
  - ABNORMAL WEIGHT GAIN [None]
  - PEPTIC ULCER [None]
  - DIABETES MELLITUS [None]
  - PEPTIC ULCER PERFORATION [None]
  - HYPERLIPIDAEMIA [None]
  - OBESITY [None]
  - ULCER [None]
  - BLOOD CHOLESTEROL INCREASED [None]
  - TYPE 2 DIABETES MELLITUS [None]
